FAERS Safety Report 14061381 (Version 2)
Quarter: 2017Q4

REPORT INFORMATION
  Report Type: Report from Study
  Country: None (occurrence: BR)
  Receive Date: 20171009
  Receipt Date: 20171122
  Transmission Date: 20180321
  Serious: Yes (Other)
  Sender: FDA-Public Use
  Company Number: BR-ABBVIE-17K-020-2122863-00

PATIENT
  Sex: Female
  Weight: 76 kg

DRUGS (1)
  1. HUMIRA [Suspect]
     Active Substance: ADALIMUMAB
     Indication: RHEUMATOID ARTHRITIS
     Route: 058
     Dates: start: 20160710

REACTIONS (4)
  - Therapeutic response shortened [Recovering/Resolving]
  - Visual impairment [Not Recovered/Not Resolved]
  - Arthralgia [Recovering/Resolving]
  - Deafness unilateral [Not Recovered/Not Resolved]
